FAERS Safety Report 12957047 (Version 1)
Quarter: 2016Q4

REPORT INFORMATION
  Report Type: Spontaneous
  Country: US (occurrence: US)
  Receive Date: 20161118
  Receipt Date: 20161118
  Transmission Date: 20170207
  Serious: No
  Sender: FDA-Public Use
  Company Number: US-PFIZER INC-2016531497

PATIENT
  Age: 57 Year
  Sex: Female
  Weight: 68.27 kg

DRUGS (1)
  1. IBUPROFEN. [Suspect]
     Active Substance: IBUPROFEN
     Indication: PAIN
     Dosage: 1200-2400 MG DAILY

REACTIONS (2)
  - Abdominal discomfort [Unknown]
  - Intentional product use issue [Unknown]
